FAERS Safety Report 4312626-4 (Version None)
Quarter: 2004Q1

REPORT INFORMATION
  Report Type: 
  Country: None (occurrence: None)
  Receive Date: 20040302
  Receipt Date: 20031222
  Transmission Date: 20041129
  Serious: Yes (Other)
  Sender: FDA-Public Use
  Company Number: 200330737BWH

PATIENT
  Age: 41 Year
  Sex: Male
  Weight: 72.5755 kg

DRUGS (2)
  1. LEVITRA [Suspect]
     Dosage: 20 MG TOTAL DAILY ORAL
     Route: 048
     Dates: start: 20031222
  2. ADVIL [Concomitant]

REACTIONS (2)
  - ERECTILE DYSFUNCTION [None]
  - ERECTION INCREASED [None]
